FAERS Safety Report 18963041 (Version 1)
Quarter: 2021Q1

REPORT INFORMATION
  Report Type: Spontaneous
  Country: GB (occurrence: GB)
  Receive Date: 20210303
  Receipt Date: 20210303
  Transmission Date: 20210420
  Serious: Yes (Hospitalization, Other)
  Sender: FDA-Public Use
  Company Number: GB-PFIZER INC-2021182749

PATIENT
  Age: 35 Year
  Sex: Male
  Weight: 91.4 kg

DRUGS (4)
  1. FLUOROURACIL. [Suspect]
     Active Substance: FLUOROURACIL
     Indication: OESOPHAGEAL ADENOCARCINOMA
     Dosage: 5650MG
     Route: 042
     Dates: start: 20210212, end: 20210212
  2. DOCETAXEL ACCORD [Suspect]
     Active Substance: DOCETAXEL
     Indication: OESOPHAGEAL ADENOCARCINOMA
     Dosage: 108MG
     Route: 042
     Dates: start: 20210212, end: 20210212
  3. OXALIPLATIN. [Suspect]
     Active Substance: OXALIPLATIN
     Indication: OESOPHAGEAL ADENOCARCINOMA
     Dosage: 180
     Route: 042
     Dates: start: 20210212, end: 20210212
  4. FLUOROURACIL. [Suspect]
     Active Substance: FLUOROURACIL
     Dosage: 5650MG
     Route: 042
     Dates: start: 20210212, end: 20210212

REACTIONS (2)
  - Arteriospasm coronary [Recovered/Resolved]
  - Myocardial infarction [Unknown]

NARRATIVE: CASE EVENT DATE: 20210213
